FAERS Safety Report 10220907 (Version 2)
Quarter: 2014Q2

REPORT INFORMATION
  Report Type: Spontaneous
  Country: JP (occurrence: JP)
  Receive Date: 20140606
  Receipt Date: 20140613
  Transmission Date: 20141212
  Serious: Yes (Other)
  Sender: FDA-Public Use
  Company Number: JP-ELI_LILLY_AND_COMPANY-JP201405010223

PATIENT
  Age: 71 Year
  Sex: Female

DRUGS (6)
  1. CYMBALTA [Suspect]
     Indication: DEPRESSION
     Route: 048
  2. CYMBALTA [Suspect]
     Dosage: 60 MG, QD
     Route: 048
  3. IMIPRAMINE HYDROCHLORIDE [Suspect]
     Indication: PRODUCT USED FOR UNKNOWN INDICATION
     Route: 065
  4. MIRTAZAPINE [Suspect]
     Indication: DEPRESSION
     Route: 065
  5. MIRTAZAPINE [Suspect]
     Dosage: UNK
     Route: 065
  6. CLOMIPRAMINE HYDROCHLORIDE [Concomitant]
     Indication: DEPRESSION
     Dosage: UNK

REACTIONS (4)
  - Intracranial aneurysm [Recovered/Resolved]
  - Blood pressure decreased [Unknown]
  - Dysuria [Recovered/Resolved]
  - Dysphagia [Recovered/Resolved]
